FAERS Safety Report 6644262-9 (Version None)
Quarter: 2010Q1

REPORT INFORMATION
  Report Type: 
  Country: None (occurrence: None)
  Receive Date: 20100304
  Receipt Date: 20090518
  Transmission Date: 20100710
  Serious: Yes (Hospitalization)
  Sender: FDA-Public Use
  Company Number: US-002913

PATIENT
  Age: 44 Year
  Sex: Male

DRUGS (5)
  1. ISOVUE-300 [Suspect]
     Indication: COMPUTERISED TOMOGRAM ABDOMEN
     Dosage: 100ML QD INTRAVENOUS
     Route: 042
     Dates: start: 20090515, end: 20090515
  2. ISOVUE-300 [Suspect]
     Indication: COMPUTERISED TOMOGRAM THORAX
     Dosage: 100ML QD INTRAVENOUS
     Route: 042
     Dates: start: 20090515, end: 20090515
  3. ISOVUE-300 [Suspect]
     Indication: STRIDOR
     Dosage: 100ML QD INTRAVENOUS
     Route: 042
     Dates: start: 20090515, end: 20090515
  4. WARFARIN SODIUM [Concomitant]
  5. PREDNISONE TAB [Concomitant]

REACTIONS (1)
  - ANAPHYLACTIC SHOCK [None]
